FAERS Safety Report 7979288-6 (Version None)
Quarter: 2011Q4

REPORT INFORMATION
  Report Type: 
  Country: None (occurrence: None)
  Receive Date: 20111214
  Receipt Date: 20111206
  Transmission Date: 20120403
  Serious: Yes (Other)
  Sender: FDA-Public Use
  Company Number: JP-JNJFOC-20111202839

PATIENT
  Age: 75 Year
  Sex: Male

DRUGS (3)
  1. LEVOFLOXACIN [Suspect]
     Indication: ATYPICAL MYCOBACTERIAL INFECTION
     Route: 065
  2. RIFAMPICIN [Concomitant]
     Route: 065
  3. ETHAMBUTOL HYDROCHLORIDE [Concomitant]
     Route: 065

REACTIONS (1)
  - TOXIC SKIN ERUPTION [None]
